FAERS Safety Report 10218962 (Version 2)
Quarter: 2014Q2

REPORT INFORMATION
  Report Type: Report from Study
  Country: FR (occurrence: FR)
  Receive Date: 20140605
  Receipt Date: 20140605
  Transmission Date: 20141212
  Serious: Yes (Hospitalization)
  Sender: FDA-Public Use
  Company Number: FR-SA-2014SA056127

PATIENT
  Age: 53 Year
  Sex: Female

DRUGS (11)
  1. AFLIBERCEPT [Suspect]
     Indication: COLORECTAL CANCER METASTATIC
     Route: 041
     Dates: start: 20131023, end: 20131023
  2. AFLIBERCEPT [Suspect]
     Indication: COLORECTAL CANCER METASTATIC
     Route: 041
  3. 5 FU [Suspect]
     Indication: COLORECTAL CANCER METASTATIC
     Route: 041
     Dates: start: 20131023, end: 20131023
  4. 5 FU [Suspect]
     Indication: COLORECTAL CANCER METASTATIC
     Route: 041
     Dates: start: 20140409, end: 20140409
  5. IRINOTECAN [Suspect]
     Indication: COLORECTAL CANCER METASTATIC
     Route: 041
     Dates: start: 20131023, end: 20131023
  6. IRINOTECAN [Suspect]
     Indication: COLORECTAL CANCER METASTATIC
     Route: 041
     Dates: start: 20140409, end: 20140409
  7. LEUCOVORIN [Suspect]
     Indication: COLORECTAL CANCER METASTATIC
     Route: 041
     Dates: start: 20131023, end: 20131023
  8. LEUCOVORIN [Suspect]
     Indication: COLORECTAL CANCER METASTATIC
     Route: 041
     Dates: start: 20140409, end: 20140409
  9. LOPERAMIDE [Concomitant]
     Indication: DIARRHOEA
     Dates: start: 201310
  10. SMECTA [Concomitant]
     Indication: DIARRHOEA
     Dates: start: 201310
  11. CALCIUM CHANNEL BLOCKERS [Concomitant]
     Dates: start: 20131028

REACTIONS (1)
  - Subileus [Not Recovered/Not Resolved]
